FAERS Safety Report 5195909-8 (Version None)
Quarter: 2007Q1

REPORT INFORMATION
  Report Type: 
  Country: None (occurrence: None)
  Receive Date: 20070102
  Receipt Date: 20061227
  Transmission Date: 20070707
  Serious: Yes (Life-Threatening, Disabling, Other)
  Sender: FDA-Public Use
  Company Number: US-MERCK-0612USA04053

PATIENT
  Age: 76 Year
  Sex: Female

DRUGS (4)
  1. FOSAMAX [Suspect]
     Indication: OSTEOPOROSIS
     Route: 048
     Dates: start: 19990101, end: 20061116
  2. PREMARIN [Concomitant]
     Route: 065
  3. CELEBREX [Concomitant]
     Route: 065
  4. [THERAPY UNSPECIFIED] [Concomitant]

REACTIONS (5)
  - BONE DISORDER [None]
  - EMPYEMA [None]
  - GINGIVAL PAIN [None]
  - ORAL INFECTION [None]
  - TOOTH EXTRACTION [None]
